FAERS Safety Report 9257572 (Version 1)
Quarter: 2013Q2

REPORT INFORMATION
  Report Type: Spontaneous
  Country: ES (occurrence: ES)
  Receive Date: 20130426
  Receipt Date: 20130426
  Transmission Date: 20140414
  Serious: Yes (Other)
  Sender: FDA-Public Use
  Company Number: ES-PFIZER INC-2013126288

PATIENT
  Sex: Male

DRUGS (1)
  1. BESITRAN [Suspect]
     Dosage: 100 MG, UNK

REACTIONS (1)
  - Drug abuse [Unknown]
